FAERS Safety Report 10236398 (Version 1)
Quarter: 2014Q1

REPORT INFORMATION
  Report Type: Spontaneous
  Country: US (occurrence: None)
  Receive Date: 20140306
  Receipt Date: 20140306
  Transmission Date: 20141002
  Serious: Yes (Other)
  Sender: FDA-Public Use
  Company Number: 163-21880-13022085

PATIENT
  Age: 64 Year
  Sex: Male

DRUGS (11)
  1. REVLIMID (LENALIDOMIDE) (CAPSULES) [Suspect]
     Indication: PLASMA CELL MYELOMA
     Dosage: 25 MG, 14 IN 14 D, PO  01/15/2013 - ONGOING THERAPY DATES
     Route: 048
     Dates: start: 20130115
  2. DEXAMETHASONE (DEXTROMETHASONE) [Concomitant]
  3. VELCADE (BORTEZOMIB) [Concomitant]
  4. CIALIS (UNKNOWN) [Concomitant]
  5. LOSARTAN (LOSARTAN) [Concomitant]
  6. TRICOR (FENOFIBRATE) (UNKNOWN) [Concomitant]
  7. PRILOSEC (OMEPRAZOLE) [Concomitant]
  8. CRESTOR (ROSUVASTATIN) [Concomitant]
  9. CINNAMON (CINNAMOMUM VERUM) [Concomitant]
  10. ASPIRIN (ACETYLSALIC ACID) [Concomitant]
  11. VITAMIN B-12 (CYANOCOBALAMIN) [Concomitant]

REACTIONS (2)
  - Flatulence [None]
  - Constipation [None]
